FAERS Safety Report 17166436 (Version 1)
Quarter: 2019Q4

REPORT INFORMATION
  Report Type: Spontaneous
  Country: US (occurrence: US)
  Receive Date: 20191217
  Receipt Date: 20191217
  Transmission Date: 20200122
  Serious: No
  Sender: FDA-Public Use
  Company Number: US-PFIZER INC-2019537221

PATIENT
  Age: 75 Year
  Sex: Female
  Weight: 5.44 kg

DRUGS (1)
  1. SIROLIMUS. [Suspect]
     Active Substance: SIROLIMUS
     Indication: IMMUNE THROMBOCYTOPENIC PURPURA
     Dosage: 1 MG, TWICE A DAY (ONCE IN THE MORNING AND ONCE IN THE EVENING, 1 EVERY 12 HOURS)
     Route: 048
     Dates: start: 201910

REACTIONS (7)
  - Alopecia [Unknown]
  - Abdominal pain upper [Unknown]
  - Product use in unapproved indication [Unknown]
  - Dizziness [Unknown]
  - Off label use [Unknown]
  - Viral infection [Unknown]
  - Joint swelling [Unknown]

NARRATIVE: CASE EVENT DATE: 2019
